FAERS Safety Report 6843928-5 (Version None)
Quarter: 2010Q3

REPORT INFORMATION
  Report Type: 
  Country: None (occurrence: None)
  Receive Date: 20100715
  Receipt Date: 20100705
  Transmission Date: 20110219
  Serious: Yes (Other)
  Sender: FDA-Public Use
  Company Number: GB-AMGEN-UK311541

PATIENT
  Age: 81 Year
  Sex: Female
  Weight: 47 kg

DRUGS (10)
  1. ARANESP [Suspect]
     Indication: RENAL FAILURE CHRONIC
     Route: 042
     Dates: start: 20060913, end: 20061106
  2. EPREX [Suspect]
     Indication: PRODUCT USED FOR UNKNOWN INDICATION
     Route: 065
  3. NEORECORMON [Suspect]
     Indication: RENAL FAILURE CHRONIC
     Route: 058
     Dates: start: 20020628, end: 20060913
  4. FOLIC ACID [Concomitant]
     Route: 048
     Dates: start: 20031229
  5. ISOSORBIDE MONONITRADE [Concomitant]
     Route: 048
     Dates: start: 20020101
  6. OMEPRAZOLE [Concomitant]
     Route: 048
     Dates: start: 20020704
  7. OROVITE [Concomitant]
     Route: 048
     Dates: start: 20031229
  8. CALCIUM ACETATE [Concomitant]
     Route: 048
     Dates: start: 20020904
  9. PRAVASTATIN [Concomitant]
     Route: 048
     Dates: start: 20031121
  10. VENOFER [Concomitant]
     Route: 042
     Dates: start: 20050614, end: 20060711

REACTIONS (1)
  - APLASIA PURE RED CELL [None]
